FAERS Safety Report 5678782-0 (Version None)
Quarter: 2008Q1

REPORT INFORMATION
  Report Type: 
  Country: None (occurrence: None)
  Receive Date: 20080321
  Receipt Date: 20080312
  Transmission Date: 20080703
  Serious: Yes (Other)
  Sender: FDA-Public Use
  Company Number: 2008-00852

PATIENT
  Age: 61 Year
  Sex: Male

DRUGS (2)
  1. VELCADE [Suspect]
     Indication: AMYLOIDOSIS
     Dosage: 1.00 MG/M2
     Dates: start: 20080201
  2. DEXAMETHASONE TAB [Suspect]
     Indication: AMYLOIDOSIS
     Dosage: 40.00 MG
     Dates: start: 20080201

REACTIONS (5)
  - CONDITION AGGRAVATED [None]
  - CORONARY ARTERY BYPASS [None]
  - EJECTION FRACTION DECREASED [None]
  - SWOLLEN TONGUE [None]
  - WEIGHT DECREASED [None]
